FAERS Safety Report 17369070 (Version 1)
Quarter: 2020Q1

REPORT INFORMATION
  Report Type: Spontaneous
  Country: US (occurrence: US)
  Receive Date: 20200120
  Receipt Date: 20200120
  Transmission Date: 20200409
  Serious: Yes (Hospitalization)
  Sender: FDA-Public Use
  Company Number: None

PATIENT
  Age: 29 Year
  Sex: Female

DRUGS (25)
  1. IBUPROFEN. [Concomitant]
     Active Substance: IBUPROFEN
  2. HYDROCOD/APAP [Concomitant]
  3. FLONASE [Concomitant]
     Active Substance: FLUTICASONE PROPIONATE
  4. MONELUKAST [Concomitant]
     Active Substance: MONTELUKAST SODIUM
  5. ALBUTEROL 0.083% [Concomitant]
     Active Substance: ALBUTEROL
  6. CIPROFLOXACIN. [Concomitant]
     Active Substance: CIPROFLOXACIN
  7. PULMOZYME [Concomitant]
     Active Substance: DORNASE ALFA
  8. VIT D [Concomitant]
     Active Substance: VITAMIN D NOS
  9. AZITHORMYCIN [Concomitant]
  10. DOXYCYCLINE. [Concomitant]
     Active Substance: DOXYCYCLINE
  11. CETIRIZINE [Concomitant]
     Active Substance: CETIRIZINE HYDROCHLORIDE
  12. TRIKAFTA [Suspect]
     Active Substance: ELEXACAFTOR\IVACAFTOR\TEZACAFTOR
     Indication: CYSTIC FIBROSIS
     Dosage: ?          OTHER DOSE:2 TABS (ELEX/TEZ/LVA);;OTHER FREQUENCY:IN AM;?
     Route: 048
     Dates: start: 20191220
  13. ALBUTEROL HFA [Concomitant]
     Active Substance: ALBUTEROL SULFATE
  14. SOD CHLO 7% [Concomitant]
  15. MVI [Concomitant]
     Active Substance: VITAMINS
  16. PAROXETINE. [Concomitant]
     Active Substance: PAROXETINE
  17. TRIKAFTA [Suspect]
     Active Substance: ELEXACAFTOR\IVACAFTOR\TEZACAFTOR
     Dosage: ?          OTHER DOSE:1 TAB (VIA);OTHER FREQUENCY:IN PM;?
     Route: 048
     Dates: start: 202001
  18. BACTRIM DS [Concomitant]
     Active Substance: SULFAMETHOXAZOLE\TRIMETHOPRIM
  19. CREON [Concomitant]
     Active Substance: PANCRELIPASE AMYLASE\PANCRELIPASE LIPASE\PANCRELIPASE PROTEASE
  20. AIMELOG [Concomitant]
  21. BASAGLAR [Concomitant]
     Active Substance: INSULIN GLARGINE
  22. PREDNISONE. [Concomitant]
     Active Substance: PREDNISONE
  23. SYMBICORT [Concomitant]
     Active Substance: BUDESONIDE\FORMOTEROL FUMARATE DIHYDRATE
  24. TOBRAMYCIN NEB SLN [Concomitant]
  25. VITAMIN E [Concomitant]
     Active Substance: .ALPHA.-TOCOPHEROL

REACTIONS (2)
  - Therapy cessation [None]
  - Pancreatitis [None]

NARRATIVE: CASE EVENT DATE: 20200113
